FAERS Safety Report 7534431-8 (Version None)
Quarter: 2011Q2

REPORT INFORMATION
  Report Type: 
  Country: None (occurrence: None)
  Receive Date: 20110608
  Receipt Date: 20110601
  Transmission Date: 20111010
  Serious: Yes (Other)
  Sender: FDA-Public Use
  Company Number: US-RB-028359-11

PATIENT
  Sex: Male

DRUGS (1)
  1. SUBOXONE [Suspect]
     Indication: PRODUCT USED FOR UNKNOWN INDICATION
     Dosage: SUBLINGUAL FILM / DOSING INFORMATION UNKNOWN.
     Route: 065

REACTIONS (5)
  - SINUS HEADACHE [None]
  - DEPRESSION [None]
  - SUICIDAL IDEATION [None]
  - UNDERDOSE [None]
  - PRURITUS GENERALISED [None]
